FAERS Safety Report 7468593-8 (Version None)
Quarter: 2011Q2

REPORT INFORMATION
  Report Type: 
  Country: None (occurrence: None)
  Receive Date: 20110509
  Receipt Date: 20110426
  Transmission Date: 20111010
  Serious: No
  Sender: FDA-Public Use
  Company Number: US-BAYER-2011-037135

PATIENT
  Sex: Female

DRUGS (1)
  1. AVELOX [Suspect]
     Indication: SINUSITIS
     Dosage: 400 MG, QD
     Route: 048
     Dates: start: 20110422

REACTIONS (5)
  - PRURITUS [None]
  - URTICARIA [None]
  - DIARRHOEA [None]
  - VOMITING [None]
  - PARAESTHESIA ORAL [None]
